FAERS Safety Report 5050730-6 (Version None)
Quarter: 2006Q3

REPORT INFORMATION
  Report Type: 
  Country: None (occurrence: None)
  Receive Date: 20060713
  Receipt Date: 20060619
  Transmission Date: 20061208
  Serious: Yes (Other)
  Sender: FDA-Public Use
  Company Number: PT-BRISTOL-MYERS SQUIBB COMPANY-13416409

PATIENT
  Age: 65 Year

DRUGS (3)
  1. STAVUDINE [Suspect]
     Dates: start: 20050601
  2. ZIDOVUDINE [Suspect]
     Dates: start: 20050601
  3. KALETRA [Suspect]
     Dates: start: 20050601

REACTIONS (1)
  - MALIGNANT PALATE NEOPLASM [None]
